FAERS Safety Report 5331484-2 (Version None)
Quarter: 2007Q2

REPORT INFORMATION
  Report Type: 
  Country: None (occurrence: None)
  Receive Date: 20070522
  Receipt Date: 20070511
  Transmission Date: 20071010
  Serious: Yes (Other)
  Sender: FDA-Public Use
  Company Number: US-ELI_LILLY_AND_COMPANY-US200705003477

PATIENT
  Sex: Male

DRUGS (3)
  1. HUMALOG MIX 75/25 [Suspect]
     Dates: start: 20040101
  2. LANTUS [Concomitant]
  3. OXYCODONE HCL [Concomitant]

REACTIONS (3)
  - CORONARY ARTERIAL STENT INSERTION [None]
  - HAEMOGLOBIN DECREASED [None]
  - MUSCULOSKELETAL PAIN [None]
